FAERS Safety Report 24722421 (Version 3)
Quarter: 2025Q3

REPORT INFORMATION
  Report Type: Spontaneous
  Country: US (occurrence: US)
  Receive Date: 20241211
  Receipt Date: 20250918
  Transmission Date: 20251020
  Serious: Yes (Hospitalization)
  Sender: PFIZER
  Company Number: US-PFIZER INC-PV202400159774

PATIENT
  Age: 70 Year
  Sex: Male

DRUGS (9)
  1. TIKOSYN [Suspect]
     Active Substance: DOFETILIDE
     Indication: Atrial fibrillation
     Dosage: 500MG TWICE A DAY
     Dates: start: 201912
  2. TIKOSYN [Suspect]
     Active Substance: DOFETILIDE
     Dosage: 250MG TWICE A DAY
     Dates: start: 202012
  3. CANDESARTAN [Concomitant]
     Active Substance: CANDESARTAN
  4. ELIQUIS [Concomitant]
     Active Substance: APIXABAN
  5. METOPROLOL [Concomitant]
     Active Substance: METOPROLOL
  6. MYRBETRIQ [Concomitant]
     Active Substance: MIRABEGRON
  7. OCREVUS [Concomitant]
     Active Substance: OCRELIZUMAB
  8. PANTOPRAZOLE [Concomitant]
     Active Substance: PANTOPRAZOLE
  9. UROXATRAL [Concomitant]
     Active Substance: ALFUZOSIN HYDROCHLORIDE

REACTIONS (2)
  - Atrial fibrillation [Unknown]
  - Heart rate decreased [Unknown]
